FAERS Safety Report 20656737 (Version 2)
Quarter: 2022Q2

REPORT INFORMATION
  Report Type: Spontaneous
  Country: US (occurrence: US)
  Receive Date: 20220331
  Receipt Date: 20220401
  Transmission Date: 20220720
  Serious: Yes (Hospitalization, Disabling, Other)
  Sender: FDA-Public Use
  Company Number: US-BoehringerIngelheim-2022-BI-162497

PATIENT
  Age: 47 Year
  Sex: Male

DRUGS (1)
  1. JARDIANCE [Suspect]
     Active Substance: EMPAGLIFLOZIN
     Indication: Type 2 diabetes mellitus

REACTIONS (4)
  - Ketoacidosis [Not Recovered/Not Resolved]
  - Bone abscess [Not Recovered/Not Resolved]
  - Paralysis [Unknown]
  - Near death experience [Unknown]

NARRATIVE: CASE EVENT DATE: 20220101
